FAERS Safety Report 5704704-X (Version None)
Quarter: 2008Q2

REPORT INFORMATION
  Report Type: 
  Country: None (occurrence: None)
  Receive Date: 20080414
  Receipt Date: 20080403
  Transmission Date: 20081010
  Serious: Yes (Other)
  Sender: FDA-Public Use
  Company Number: RU-PFIZER INC-2008029682

PATIENT
  Sex: Female

DRUGS (1)
  1. ZMAX [Suspect]
     Indication: BRONCHITIS
     Route: 048

REACTIONS (2)
  - ABDOMINAL RIGIDITY [None]
  - DIARRHOEA [None]
